FAERS Safety Report 25343312 (Version 1)
Quarter: 2025Q2

REPORT INFORMATION
  Report Type: Report from Study
  Country: FR (occurrence: FR)
  Receive Date: 20250521
  Receipt Date: 20250521
  Transmission Date: 20250717
  Serious: Yes (Hospitalization, Other)
  Sender: MYLAN
  Company Number: FR-009507513-2403FRA005399

PATIENT
  Age: 66 Year
  Sex: Male

DRUGS (20)
  1. METHOTREXATE [Suspect]
     Active Substance: METHOTREXATE
     Indication: Product used for unknown indication
  2. METHOTREXATE [Suspect]
     Active Substance: METHOTREXATE
     Route: 065
  3. METHOTREXATE [Suspect]
     Active Substance: METHOTREXATE
     Route: 065
  4. METHOTREXATE [Suspect]
     Active Substance: METHOTREXATE
  5. CISPLATIN [Suspect]
     Active Substance: CISPLATIN
     Indication: Head and neck cancer metastatic
  6. CISPLATIN [Suspect]
     Active Substance: CISPLATIN
     Route: 065
  7. CISPLATIN [Suspect]
     Active Substance: CISPLATIN
     Route: 065
  8. CISPLATIN [Suspect]
     Active Substance: CISPLATIN
  9. KEYTRUDA [Suspect]
     Active Substance: PEMBROLIZUMAB
     Indication: Head and neck cancer metastatic
     Dosage: 200 MILLIGRAM, Q3W (DAILY DOSE : 9.4 MILLIGRAM REGIMEN DOSE : 1200 MILLIGRAM)
     Dates: start: 20231120, end: 20240313
  10. KEYTRUDA [Suspect]
     Active Substance: PEMBROLIZUMAB
     Dosage: 200 MILLIGRAM, Q3W (DAILY DOSE : 9.4 MILLIGRAM REGIMEN DOSE : 1200 MILLIGRAM)
     Dates: start: 20231120, end: 20240313
  11. KEYTRUDA [Suspect]
     Active Substance: PEMBROLIZUMAB
     Dosage: 200 MILLIGRAM, Q3W (DAILY DOSE : 9.4 MILLIGRAM REGIMEN DOSE : 1200 MILLIGRAM)
     Route: 065
     Dates: start: 20231120, end: 20240313
  12. KEYTRUDA [Suspect]
     Active Substance: PEMBROLIZUMAB
     Dosage: 200 MILLIGRAM, Q3W (DAILY DOSE : 9.4 MILLIGRAM REGIMEN DOSE : 1200 MILLIGRAM)
     Route: 065
     Dates: start: 20231120, end: 20240313
  13. KEYTRUDA [Suspect]
     Active Substance: PEMBROLIZUMAB
     Dosage: 200 MILLIGRAM, Q3W
     Dates: start: 20231120, end: 20240313
  14. KEYTRUDA [Suspect]
     Active Substance: PEMBROLIZUMAB
     Dosage: 200 MILLIGRAM, Q3W
     Dates: start: 20231120, end: 20240313
  15. KEYTRUDA [Suspect]
     Active Substance: PEMBROLIZUMAB
     Dosage: 200 MILLIGRAM, Q3W
     Route: 065
     Dates: start: 20231120, end: 20240313
  16. KEYTRUDA [Suspect]
     Active Substance: PEMBROLIZUMAB
     Dosage: 200 MILLIGRAM, Q3W
     Route: 065
     Dates: start: 20231120, end: 20240313
  17. KEYTRUDA [Suspect]
     Active Substance: PEMBROLIZUMAB
     Dosage: 200 MILLIGRAM, Q3W
     Dates: start: 20231120, end: 20240313
  18. KEYTRUDA [Suspect]
     Active Substance: PEMBROLIZUMAB
     Dosage: 200 MILLIGRAM, Q3W
     Route: 065
     Dates: start: 20231120, end: 20240313
  19. KEYTRUDA [Suspect]
     Active Substance: PEMBROLIZUMAB
     Dosage: 200 MILLIGRAM, Q3W
     Dates: start: 20231120, end: 20240313
  20. KEYTRUDA [Suspect]
     Active Substance: PEMBROLIZUMAB
     Dosage: 200 MILLIGRAM, Q3W
     Route: 065
     Dates: start: 20231120, end: 20240313

REACTIONS (6)
  - General physical condition abnormal [Recovered/Resolved]
  - Hepatic cytolysis [Recovering/Resolving]
  - Malignant neoplasm progression [Not Recovered/Not Resolved]
  - Constipation [Recovered/Resolved]
  - Asthenia [Recovered/Resolved]
  - Liver function test abnormal [Recovering/Resolving]

NARRATIVE: CASE EVENT DATE: 20231214
